FAERS Safety Report 12272051 (Version 1)
Quarter: 2016Q2

REPORT INFORMATION
  Report Type: Spontaneous
  Country: US (occurrence: US)
  Receive Date: 20160415
  Receipt Date: 20160415
  Transmission Date: 20160815
  Serious: No
  Sender: FDA-Public Use
  Company Number: US-FERRINGPH-2015FE03480

PATIENT
  Age: 70 Year
  Sex: Male
  Weight: 74.83 kg

DRUGS (4)
  1. FIRMAGON [Suspect]
     Active Substance: DEGARELIX ACETATE
     Indication: PROSTATE CANCER
     Dosage: 240 MG, UNK
     Route: 058
     Dates: start: 201504, end: 201504
  2. FIRMAGON [Suspect]
     Active Substance: DEGARELIX ACETATE
     Dosage: 80 MG, EVERY 28 DAYS
     Route: 058
     Dates: start: 201505
  3. VITAMINS [Concomitant]
     Active Substance: VITAMINS
  4. PREDNISONE. [Concomitant]
     Active Substance: PREDNISONE

REACTIONS (1)
  - Pyrexia [Recovered/Resolved]

NARRATIVE: CASE EVENT DATE: 201508
